FAERS Safety Report 4332410-5 (Version None)
Quarter: 2004Q2

REPORT INFORMATION
  Report Type: 
  Country: None (occurrence: None)
  Receive Date: 20040401
  Receipt Date: 20040325
  Transmission Date: 20050107
  Serious: Yes (Life-Threatening, Hospitalization, Disabling, Other)
  Sender: FDA-Public Use
  Company Number: 2004-03-1338

PATIENT
  Age: 62 Year
  Sex: Female
  Weight: 66 kg

DRUGS (5)
  1. PEG-INTRON [Suspect]
     Indication: HEPATITIS C
     Dosage: 100 MCG QWK SUBCUTANEOUS; 120 MCG SUBCUTANEOUS
     Route: 058
     Dates: start: 20031201, end: 20040227
  2. CARBIDOPA AND LEVODOPA [Concomitant]
  3. PERGOLIDE MESYLATE [Concomitant]
  4. DOMPERIDONE [Concomitant]
  5. RIBAVERIN CAPSULES [Suspect]
     Indication: HEPATITIS C
     Dosage: 800 MG QD ORAL
     Route: 048
     Dates: start: 20031201, end: 20040227

REACTIONS (8)
  - CAROTID ARTERY STENOSIS [None]
  - CEREBRAL INFARCTION [None]
  - HEPATIC MASS [None]
  - HEPATOSPLENOMEGALY [None]
  - NAUSEA [None]
  - URINARY TRACT INFECTION [None]
  - VERTIGO [None]
  - VOMITING [None]
